FAERS Safety Report 6404946-4 (Version None)
Quarter: 2009Q4

REPORT INFORMATION
  Report Type: 
  Country: None (occurrence: None)
  Receive Date: 20091019
  Receipt Date: 20090916
  Transmission Date: 20100525
  Serious: No
  Sender: FDA-Public Use
  Company Number: US-BAYER-200933267NA

PATIENT
  Age: 68 Year
  Sex: Female

DRUGS (1)
  1. CIPRO [Suspect]
     Indication: KIDNEY INFECTION
     Dosage: TOTAL DAILY DOSE: 250 MG  UNIT DOSE: 250 MG
     Dates: start: 20090915

REACTIONS (5)
  - BURNING SENSATION [None]
  - FLUSHING [None]
  - HYPERSENSITIVITY [None]
  - PRURITUS [None]
  - RASH [None]
